FAERS Safety Report 13376802 (Version 1)
Quarter: 2017Q1

REPORT INFORMATION
  Report Type: Spontaneous
  Country: US (occurrence: US)
  Receive Date: 20170328
  Receipt Date: 20170328
  Transmission Date: 20170429
  Serious: No
  Sender: FDA-Public Use
  Company Number: None

PATIENT
  Age: 51 Year
  Sex: Female
  Weight: 70.65 kg

DRUGS (7)
  1. CRANBERRY. [Concomitant]
     Active Substance: CRANBERRY
  2. TRIAMCINOLONE ACETONIDE. [Suspect]
     Active Substance: TRIAMCINOLONE ACETONIDE
     Indication: ECZEMA
     Dosage: QUANTITY:80 CREAM;OTHER ROUTE:ON THE SKIN?
     Dates: start: 20170321, end: 20170328
  3. MULTIVITAMIN [Concomitant]
     Active Substance: VITAMINS
  4. BIOTIN [Concomitant]
     Active Substance: BIOTIN
  5. GLUCOSAMINE [Concomitant]
     Active Substance: GLUCOSAMINE
  6. CALCIUM [Concomitant]
     Active Substance: CALCIUM
  7. ZINC. [Concomitant]
     Active Substance: ZINC

REACTIONS (1)
  - Insomnia [None]

NARRATIVE: CASE EVENT DATE: 20170328
